FAERS Safety Report 5916563-0 (Version None)
Quarter: 2008Q4

REPORT INFORMATION
  Report Type: 
  Country: None (occurrence: None)
  Receive Date: 20081013
  Receipt Date: 20081008
  Transmission Date: 20090506
  Serious: Yes (Death)
  Sender: FDA-Public Use
  Company Number: US-BRISTOL-MYERS SQUIBB COMPANY-14366397

PATIENT
  Sex: Male

DRUGS (5)
  1. CARBIDOPA + LEVODOPA [Suspect]
     Route: 048
  2. ISOSORBIDE MONONITRATE [Suspect]
  3. FLUOXETINE HCL [Suspect]
  4. ZOLPIDEM TARTRATE [Suspect]
  5. ONDANSETRON HCL [Suspect]

REACTIONS (3)
  - COMPLETED SUICIDE [None]
  - MUSCLE SPASMS [None]
  - RESTLESSNESS [None]
